FAERS Safety Report 6243325-X (Version None)
Quarter: 2009Q2

REPORT INFORMATION
  Report Type: 
  Country: None (occurrence: None)
  Receive Date: 20090624
  Receipt Date: 20090619
  Transmission Date: 20091009
  Serious: Yes (Death, Hospitalization)
  Sender: FDA-Public Use
  Company Number: PHHO2009BR07725

PATIENT
  Sex: Female

DRUGS (31)
  1. CYCLOSPORINE [Suspect]
     Indication: RENAL TRANSPLANT
     Dosage: 250 MG, QD
     Route: 048
     Dates: start: 20030226
  2. CYCLOSPORINE [Suspect]
     Dosage: 500 MG, QD
     Route: 048
     Dates: start: 20030227, end: 20030325
  3. CYCLOSPORINE [Suspect]
     Dosage: 225 MG, BID
     Route: 048
     Dates: start: 20030326, end: 20030416
  4. CYCLOSPORINE [Suspect]
     Dosage: 200 MG, BID
     Route: 048
     Dates: start: 20030417, end: 20030417
  5. CYCLOSPORINE [Suspect]
     Dosage: 150 MG, BID
     Route: 048
     Dates: start: 20030418, end: 20030506
  6. CYCLOSPORINE [Suspect]
     Dosage: 125 MG, BID
     Route: 048
     Dates: start: 20030506, end: 20030520
  7. CYCLOSPORINE [Suspect]
     Dosage: 100 MG, BID
     Route: 048
     Dates: start: 20030521, end: 20030529
  8. CYCLOSPORINE [Suspect]
     Dosage: 50 MG, BID
     Route: 048
     Dates: start: 20030530, end: 20030612
  9. CYCLOSPORINE [Suspect]
     Dosage: 25 MG, BID
     Route: 048
     Dates: start: 20030613, end: 20030616
  10. MYCOPHENOLATE MOFETIL [Suspect]
     Indication: RENAL TRANSPLANT
     Dosage: 1500 MG, QD
     Route: 048
     Dates: start: 20030226, end: 20030226
  11. MYCOPHENOLATE MOFETIL [Suspect]
     Dosage: 3000 MG, QD
     Route: 048
     Dates: start: 20030227, end: 20030303
  12. MYCOPHENOLATE MOFETIL [Suspect]
     Dosage: 2000 MG, QD
     Route: 048
     Dates: start: 20030304, end: 20030418
  13. MYCOPHENOLATE MOFETIL [Suspect]
     Dosage: 1500 MG, QD
     Route: 048
     Dates: start: 20030419, end: 20030428
  14. MYCOPHENOLATE MOFETIL [Suspect]
     Dosage: 1 G, BID
     Route: 048
     Dates: start: 20030429, end: 20030529
  15. MYCOPHENOLATE MOFETIL [Suspect]
     Dosage: 500 MG, BID
     Route: 048
     Dates: start: 20030530, end: 20030615
  16. MYCOPHENOLATE MOFETIL [Suspect]
     Dosage: 500 MG, QD
     Route: 048
     Dates: start: 20030616, end: 20030623
  17. METHYLPREDNISOLONE [Suspect]
     Indication: RENAL TRANSPLANT
     Dosage: 500 MG, ONCE/SINGLE
     Route: 042
     Dates: start: 20030226, end: 20030226
  18. METHYLPREDNISOLONE [Suspect]
     Dosage: 500 MG, QD
     Dates: start: 20030401, end: 20030407
  19. PREDNISONE [Suspect]
     Indication: RENAL TRANSPLANT
     Dosage: 40 MG, QD
     Route: 048
     Dates: start: 20030227, end: 20030209
  20. PREDNISONE [Suspect]
     Dosage: 30 MG, QD
     Route: 048
     Dates: start: 20030210, end: 20030401
  21. PREDNISONE [Suspect]
     Dosage: UNK
     Dates: start: 20030401, end: 20030406
  22. PREDNISONE [Suspect]
     Dosage: 40 MG, QD
     Route: 048
     Dates: start: 20030407, end: 20030418
  23. PREDNISONE [Suspect]
     Dosage: 30 MG, QD
     Route: 048
     Dates: start: 20030419, end: 20030513
  24. PREDNISONE [Suspect]
     Dosage: 20 MG, QD
     Route: 048
     Dates: start: 20030514, end: 20030529
  25. PREDNISONE [Suspect]
     Dosage: 10 MG, QD
     Route: 048
     Dates: start: 20030530
  26. SULFAMETHOXAZOLE AND TRIMETHOPRIM [Concomitant]
  27. RANITIDINE [Concomitant]
  28. ACETYLSALICYLIC ACID [Concomitant]
  29. FUROSEMIDE [Concomitant]
  30. IMIPENEM [Concomitant]
  31. PROPRANOLOL [Concomitant]
     Dosage: UNK

REACTIONS (11)
  - CYTOMEGALOVIRUS INFECTION [None]
  - ESCHERICHIA BACTERAEMIA [None]
  - ESCHERICHIA INFECTION [None]
  - GASTRODUODENAL ULCER [None]
  - GASTROINTESTINAL HAEMORRHAGE [None]
  - MELAENA [None]
  - SEPSIS [None]
  - SEPTIC SHOCK [None]
  - STAPHYLOCOCCAL SEPSIS [None]
  - SUBCUTANEOUS ABSCESS [None]
  - THROMBOCYTOPENIA [None]
